FAERS Safety Report 22601832 (Version 1)
Quarter: 2023Q2

REPORT INFORMATION
  Report Type: Spontaneous
  Country: US (occurrence: US)
  Receive Date: 20230614
  Receipt Date: 20230614
  Transmission Date: 20230722
  Serious: No
  Sender: FDA-Public Use
  Company Number: ENDG22-04079

PATIENT
  Age: 74 Year
  Sex: Female

DRUGS (5)
  1. BOSENTAN [Suspect]
     Active Substance: BOSENTAN
     Indication: Pulmonary arterial hypertension
     Dosage: 125 MG, BID
     Route: 048
     Dates: start: 20190613
  2. BOSENTAN [Suspect]
     Active Substance: BOSENTAN
     Dosage: 125 MG, BID
     Route: 048
     Dates: start: 20190617
  3. ORENITRAM [Suspect]
     Active Substance: TREPROSTINIL
     Indication: Product used for unknown indication
     Dosage: 5 MG, TID
     Route: 065
  4. ORENITRAM [Suspect]
     Active Substance: TREPROSTINIL
     Dosage: UNK UNKNOWN, UNKNOWN
     Route: 065
  5. ORENITRAM [Suspect]
     Active Substance: TREPROSTINIL
     Dosage: 4.875 MG, TID
     Route: 065

REACTIONS (2)
  - Diarrhoea [Recovered/Resolved]
  - Headache [Unknown]

NARRATIVE: CASE EVENT DATE: 20220601
